FAERS Safety Report 5156089-8 (Version None)
Quarter: 2006Q4

REPORT INFORMATION
  Report Type: 
  Country: None (occurrence: None)
  Receive Date: 20061122
  Receipt Date: 20061113
  Transmission Date: 20070319
  Serious: Yes (Other)
  Sender: FDA-Public Use
  Company Number: PHRM2006FR03054

PATIENT
  Sex: Female

DRUGS (4)
  1. TRANXENE [Suspect]
     Dosage: UNK, UNK
     Route: 048
     Dates: end: 20060203
  2. SUBUTEX [Suspect]
     Dosage: 8 MG, QD
     Route: 048
     Dates: end: 20060203
  3. CORTICOSTEROIDS [Suspect]
     Dosage: UNK, UNK
     Dates: start: 20051224, end: 20051225
  4. TEGRETOL [Suspect]
     Indication: EPILEPSY
     Route: 048
     Dates: end: 20060204

REACTIONS (5)
  - CAESAREAN SECTION [None]
  - DRUG EXPOSURE DURING PREGNANCY [None]
  - OLIGOHYDRAMNIOS [None]
  - THREATENED LABOUR [None]
  - UTERINE CERVIX DILATION PROCEDURE [None]
